FAERS Safety Report 16555515 (Version 1)
Quarter: 2019Q3

REPORT INFORMATION
  Report Type: Spontaneous
  Country: ZA (occurrence: ZA)
  Receive Date: 20190710
  Receipt Date: 20190710
  Transmission Date: 20191004
  Serious: Yes (Other)
  Sender: FDA-Public Use
  Company Number: ZA-BAYER-2019-129156

PATIENT
  Age: 46 Year
  Sex: Female

DRUGS (6)
  1. MIRENA [Suspect]
     Active Substance: LEVONORGESTREL
     Dosage: 20 MCG/24HR, CONT
     Route: 015
     Dates: start: 2002, end: 2007
  2. MIRENA [Suspect]
     Active Substance: LEVONORGESTREL
     Dosage: 20 MCG/24HR, CONT
     Route: 015
     Dates: start: 2007, end: 2012
  3. MIRENA [Suspect]
     Active Substance: LEVONORGESTREL
     Dosage: 20 MCG/24HR, CONT
     Route: 015
     Dates: start: 1997, end: 2002
  4. MIRENA [Suspect]
     Active Substance: LEVONORGESTREL
     Dosage: 20 MCG/24HR, CONT
     Route: 015
     Dates: start: 2017, end: 2018
  5. MIRENA [Suspect]
     Active Substance: LEVONORGESTREL
  6. MIRENA [Suspect]
     Active Substance: LEVONORGESTREL
     Dosage: 20 MCG/24HR, CONT
     Route: 015
     Dates: start: 2012, end: 2017

REACTIONS (10)
  - Weight increased [None]
  - Hair growth abnormal [None]
  - Uterine leiomyoma [None]
  - Mood altered [None]
  - Autoimmune thyroiditis [None]
  - Constipation [None]
  - Abdominal distension [None]
  - Loss of libido [None]
  - Insomnia [None]
  - Device expulsion [None]

NARRATIVE: CASE EVENT DATE: 2018
